FAERS Safety Report 8764294 (Version 1)
Quarter: 2012Q4

REPORT INFORMATION
  Report Type: 
  Country: US (occurrence: US)
  Receive Date: 20120831
  Receipt Date: 20120831
  Transmission Date: 20130627
  Serious: No
  Sender: FDA-Public Use
  Company Number: US-009507513-1208USA010908

PATIENT

DRUGS (2)
  1. COSOPT [Suspect]
     Indication: GLAUCOMA
     Route: 047
  2. RESTASIS [Suspect]
     Indication: DRY EYE
     Dosage: UNK
     Route: 047

REACTIONS (1)
  - Eye irritation [Unknown]
